FAERS Safety Report 14069476 (Version 2)
Quarter: 2017Q4

REPORT INFORMATION
  Report Type: Spontaneous
  Country: ES (occurrence: ES)
  Receive Date: 20171010
  Receipt Date: 20171013
  Transmission Date: 20180321
  Serious: Yes (Death, Other)
  Sender: FDA-Public Use
  Company Number: ES-AMGEN-ESPSP2017151681

PATIENT
  Sex: Male

DRUGS (1)
  1. NPLATE [Suspect]
     Active Substance: ROMIPLOSTIM
     Indication: PRODUCT USED FOR UNKNOWN INDICATION
     Dosage: UNK, (HIGHEST DOSE)
     Route: 065

REACTIONS (4)
  - Cerebral haemorrhage [Fatal]
  - Cerebrovascular accident [Unknown]
  - Viral infection [Unknown]
  - Therapeutic response decreased [Unknown]
